FAERS Safety Report 5674742-4 (Version None)
Quarter: 2008Q1

REPORT INFORMATION
  Report Type: 
  Country: None (occurrence: None)
  Receive Date: 20080319
  Receipt Date: 20080319
  Transmission Date: 20080703
  Serious: Yes (Other)
  Sender: FDA-Public Use
  Company Number: None

PATIENT
  Age: 34 Year
  Sex: Male
  Weight: 95.2554 kg

DRUGS (1)
  1. PROAIR HFA [Suspect]
     Indication: ASTHMA
     Dosage: WHEN EVER NEEDED INHAL
     Route: 055

REACTIONS (3)
  - DRUG INEFFECTIVE [None]
  - FEAR [None]
  - PHARMACEUTICAL PRODUCT COMPLAINT [None]
